FAERS Safety Report 14525633 (Version 5)
Quarter: 2018Q2

REPORT INFORMATION
  Report Type: Spontaneous
  Country: IE (occurrence: IE)
  Receive Date: 20180213
  Receipt Date: 20180412
  Transmission Date: 20180711
  Serious: Yes (Other)
  Sender: FDA-Public Use
  Company Number: IE-PFIZER INC-2018056171

PATIENT
  Age: 24 Year
  Sex: Female
  Weight: 72 kg

DRUGS (4)
  1. DIFENE [Concomitant]
     Active Substance: DICLOFENAC SODIUM
     Dosage: 75 MG, 2X/DAY
     Route: 048
  2. CIPROXIN [Concomitant]
     Active Substance: CIPROFLOXACIN
     Indication: KIDNEY INFECTION
     Dosage: 500 MG, 1X/DAY
     Route: 048
     Dates: start: 20180129, end: 20180204
  3. DALACIN [Suspect]
     Active Substance: CLINDAMYCIN
     Indication: BACTERIAL VULVOVAGINITIS
     Dosage: UNK, ONE APPLICATION PER NIGHT
     Dates: start: 20180202, end: 20180206
  4. DAKTACORT [Concomitant]
     Active Substance: HYDROCORTISONE\MICONAZOLE NITRATE
     Indication: CANDIDA INFECTION
     Dosage: UNK, 1X/DAY
     Route: 061
     Dates: start: 20180129, end: 20180204

REACTIONS (7)
  - Vaginal haemorrhage [Not Recovered/Not Resolved]
  - Vulvovaginal discomfort [Not Recovered/Not Resolved]
  - Product quality issue [Unknown]
  - Incorrect dose administered [Not Recovered/Not Resolved]
  - Insomnia [Not Recovered/Not Resolved]
  - Vulvovaginal inflammation [Not Recovered/Not Resolved]
  - Vulvovaginal pain [Not Recovered/Not Resolved]

NARRATIVE: CASE EVENT DATE: 201802
